FAERS Safety Report 9279366 (Version 2)
Quarter: 2013Q2

REPORT INFORMATION
  Report Type: Spontaneous
  Country: US (occurrence: US)
  Receive Date: 20130508
  Receipt Date: 20130610
  Transmission Date: 20140414
  Serious: Yes (Hospitalization, Other)
  Sender: FDA-Public Use
  Company Number: US-PFIZER INC-2013139073

PATIENT
  Age: 72 Year
  Sex: Female

DRUGS (3)
  1. CLINDAMYCIN PHOSPHATE [Suspect]
     Indication: STAPHYLOCOCCAL INFECTION
     Dosage: UNK
     Route: 042
  2. CLINDAMYCIN PHOSPHATE [Suspect]
     Indication: LOCAL SWELLING
  3. CLINDAMYCIN PHOSPHATE [Suspect]
     Indication: ERYTHEMA

REACTIONS (2)
  - Liver disorder [Unknown]
  - Hepatic enzyme increased [Recovered/Resolved]
